FAERS Safety Report 14908389 (Version 1)
Quarter: 2018Q2

REPORT INFORMATION
  Report Type: Spontaneous
  Country: US (occurrence: US)
  Receive Date: 20180517
  Receipt Date: 20180517
  Transmission Date: 20180711
  Serious: No
  Sender: FDA-Public Use
  Company Number: PHHY2018US006972

PATIENT
  Age: 18 Month
  Sex: Female

DRUGS (1)
  1. ZADITOR [Suspect]
     Active Substance: KETOTIFEN FUMARATE
     Indication: CONJUNCTIVITIS
     Route: 047

REACTIONS (2)
  - Ocular hyperaemia [Unknown]
  - Drug administered to patient of inappropriate age [Unknown]
